FAERS Safety Report 10304894 (Version 1)
Quarter: 2014Q3

REPORT INFORMATION
  Report Type: Spontaneous
  Country: US (occurrence: None)
  Receive Date: 20140710
  Receipt Date: 20140710
  Transmission Date: 20150326
  Serious: Yes (Hospitalization, Disabling)
  Sender: FDA-Public Use
  Company Number: None

PATIENT
  Age: 62 Year
  Sex: Female
  Weight: 119.75 kg

DRUGS (13)
  1. VENLAFAXINE [Suspect]
     Active Substance: VENLAFAXINE HYDROCHLORIDE
     Indication: BLOOD CHOLESTEROL INCREASED
     Dates: start: 20140418, end: 20140502
  2. MOTRIN [Concomitant]
     Active Substance: IBUPROFEN
  3. VENLAFAXINE [Concomitant]
     Active Substance: VENLAFAXINE HYDROCHLORIDE
  4. ATORVASTATIN [Concomitant]
     Active Substance: ATORVASTATIN
  5. VITAMIN D [Concomitant]
     Active Substance: CHOLECALCIFEROL
  6. CENTRUM SILVER [Concomitant]
     Active Substance: VITAMINS
  7. MATZIM [Concomitant]
     Active Substance: DILTIAZEM
  8. ALBUTEROL. [Concomitant]
     Active Substance: ALBUTEROL
  9. VELLETRAN [Concomitant]
  10. LEVOXYL [Concomitant]
     Active Substance: LEVOTHYROXINE SODIUM
  11. XANAX [Concomitant]
     Active Substance: ALPRAZOLAM
  12. VALSARTAN. [Concomitant]
     Active Substance: VALSARTAN
  13. KLORG [Concomitant]

REACTIONS (10)
  - Muscle twitching [None]
  - Fear [None]
  - Dizziness [None]
  - Impaired driving ability [None]
  - Fall [None]
  - Dyspnoea [None]
  - Dry mouth [None]
  - Nausea [None]
  - Musculoskeletal stiffness [None]
  - Insomnia [None]

NARRATIVE: CASE EVENT DATE: 201406
